FAERS Safety Report 24037604 (Version 1)
Quarter: 2024Q3

REPORT INFORMATION
  Report Type: Spontaneous
  Country: CN (occurrence: CN)
  Receive Date: 20240702
  Receipt Date: 20240702
  Transmission Date: 20241016
  Serious: Yes (Hospitalization)
  Sender: BEIGENE
  Company Number: CN-BEIGENE-BGN-2024-009668

PATIENT

DRUGS (4)
  1. TISLELIZUMAB [Suspect]
     Active Substance: TISLELIZUMAB
     Indication: Transitional cell carcinoma metastatic
     Dosage: 200 MILLIGRAM
     Route: 041
     Dates: start: 20240531
  2. ALIMTA [Suspect]
     Active Substance: PEMETREXED DISODIUM
     Indication: Transitional cell carcinoma metastatic
     Dosage: 0.3 GRAM
     Route: 041
     Dates: start: 20240531
  3. ALIMTA [Suspect]
     Active Substance: PEMETREXED DISODIUM
     Dosage: 0.5 GRAM
     Route: 041
     Dates: start: 20240531
  4. DENOSUMAB [Concomitant]
     Active Substance: DENOSUMAB
     Indication: Transitional cell carcinoma metastatic
     Dosage: 120 MILLIGRAM
     Route: 058
     Dates: start: 20240531

REACTIONS (3)
  - Myelosuppression [Recovering/Resolving]
  - Pneumonia [Recovering/Resolving]
  - Oedema peripheral [Recovering/Resolving]

NARRATIVE: CASE EVENT DATE: 20240603
